FAERS Safety Report 14848532 (Version 1)
Quarter: 2018Q2

REPORT INFORMATION
  Report Type: Spontaneous
  Country: US (occurrence: US)
  Receive Date: 20180419
  Receipt Date: 20180419
  Transmission Date: 20180711
  Serious: No
  Sender: FDA-Public Use
  Company Number: None

PATIENT
  Age: 24 Year
  Sex: Female

DRUGS (1)
  1. GLATIRAMER 20MG PFS INJ (30/BOX) [Suspect]
     Active Substance: GLATIRAMER
     Route: 058

REACTIONS (7)
  - Skin irritation [None]
  - Injection site erythema [None]
  - Injection site mass [None]
  - Erythema [None]
  - Swelling [None]
  - Injection site swelling [None]
  - Injection site irritation [None]

NARRATIVE: CASE EVENT DATE: 20180416
